FAERS Safety Report 7343582-2 (Version None)
Quarter: 2011Q1

REPORT INFORMATION
  Report Type: 
  Country: None (occurrence: None)
  Receive Date: 20110310
  Receipt Date: 20100603
  Transmission Date: 20110831
  Serious: No
  Sender: FDA-Public Use
  Company Number: A0862693A

PATIENT
  Age: 31 Year
  Sex: Female

DRUGS (1)
  1. NICOTINE POLACRILEX [Suspect]
     Dates: start: 20100601

REACTIONS (6)
  - CHOLINERGIC SYNDROME [None]
  - MALAISE [None]
  - DRUG ADMINISTRATION ERROR [None]
  - EXPIRED DRUG ADMINISTERED [None]
  - ANXIETY [None]
  - DRUG EXPOSURE DURING PREGNANCY [None]
